FAERS Safety Report 5169145-5 (Version None)
Quarter: 2006Q4

REPORT INFORMATION
  Report Type: 
  Country: None (occurrence: None)
  Receive Date: 20061211
  Receipt Date: 20051228
  Transmission Date: 20070319
  Serious: Yes (Hospitalization)
  Sender: FDA-Public Use
  Company Number: US-BRISTOL-MYERS SQUIBB COMPANY-13230594

PATIENT
  Age: 69 Year
  Sex: Female
  Weight: 66 kg

DRUGS (2)
  1. PROLIXIN [Suspect]
     Indication: SCHIZOPHRENIA
     Route: 042
  2. PROLIXIN [Suspect]
     Route: 048
     Dates: start: 20051208

REACTIONS (1)
  - DRUG INEFFECTIVE [None]
